FAERS Safety Report 7239159-X (Version None)
Quarter: 2011Q1

REPORT INFORMATION
  Report Type: 
  Country: None (occurrence: None)
  Receive Date: 20110114
  Receipt Date: 20110107
  Transmission Date: 20110831
  Serious: Yes (Disabling, Other)
  Sender: FDA-Public Use
  Company Number: ALA_00746_2010

PATIENT
  Sex: Female
  Weight: 93.441 kg

DRUGS (25)
  1. DIPHENHYDRAMINE [Concomitant]
  2. SPIRONOLACTONE [Concomitant]
  3. PREVACID [Concomitant]
  4. SIMVASTATIN [Concomitant]
  5. NORVASC [Concomitant]
  6. AVANDAMET [Concomitant]
  7. LANTUS [Concomitant]
  8. RESTORIL [Concomitant]
  9. MAXZIDE [Concomitant]
  10. UNSPECIFIED CAFFEINE CONTAINING STIMULANT [Concomitant]
  11. RISPERIDONE [Concomitant]
  12. TOPROL-XL [Concomitant]
  13. VITAMIN E [Concomitant]
  14. COLACE [Concomitant]
  15. NATEGLINIDE [Concomitant]
  16. COUMADIN [Concomitant]
  17. REGLAN [Suspect]
     Indication: DYSPEPSIA
     Dosage: 10 MG AC/HS ORAL
     Route: 048
     Dates: start: 20030822, end: 20090505
  18. REGLAN [Suspect]
     Indication: GASTROOESOPHAGEAL REFLUX DISEASE
     Dosage: 10 MG AC/HS ORAL
     Route: 048
     Dates: start: 20030822, end: 20090505
  19. ACIPHEX [Concomitant]
  20. DIAZEPAM [Concomitant]
  21. POTASSIUM [Concomitant]
  22. LASIX [Concomitant]
  23. AMITRIPTYLINE HCL [Concomitant]
  24. TRAZODONE HCL [Concomitant]
  25. PHENTERMINE [Concomitant]

REACTIONS (16)
  - PARAESTHESIA [None]
  - DRY SKIN [None]
  - DYSTONIA [None]
  - MYALGIA [None]
  - EXTRAPYRAMIDAL DISORDER [None]
  - TARDIVE DYSKINESIA [None]
  - EMOTIONAL DISORDER [None]
  - MALAISE [None]
  - HYPOAESTHESIA [None]
  - DYSKINESIA [None]
  - INJURY [None]
  - MUSCLE TIGHTNESS [None]
  - PULMONARY HYPERTENSION [None]
  - ECONOMIC PROBLEM [None]
  - ARTHRALGIA [None]
  - BONE DISORDER [None]
